FAERS Safety Report 5385227-7 (Version None)
Quarter: 2007Q3

REPORT INFORMATION
  Report Type: 
  Country: None (occurrence: None)
  Receive Date: 20070706
  Receipt Date: 20070706
  Transmission Date: 20080115
  Serious: Yes (Other)
  Sender: FDA-Public Use
  Company Number: None

PATIENT
  Age: 36 Year
  Sex: Female
  Weight: 78.0187 kg

DRUGS (3)
  1. CELEBREX [Suspect]
     Indication: INFLAMMATION
     Dosage: 200 MG/2 SAMPLES OF 3 QUANTITY 2 TIMES DAILY PO
     Route: 048
     Dates: start: 20070705
  2. CELEBREX [Suspect]
     Indication: PROCEDURAL PAIN
     Dosage: 200 MG/2 SAMPLES OF 3 QUANTITY 2 TIMES DAILY PO
     Route: 048
     Dates: start: 20070705
  3. CELEBREX [Suspect]
     Dosage: 200 MG/ 50 QTY/PRESCRIBED 2 TIMES DAILY PO
     Route: 048

REACTIONS (2)
  - CONTRAINDICATION TO MEDICAL TREATMENT [None]
  - PHARMACEUTICAL PRODUCT COMPLAINT [None]
